FAERS Safety Report 24251880 (Version 3)
Quarter: 2024Q3

REPORT INFORMATION
  Report Type: Spontaneous
  Country: US (occurrence: US)
  Receive Date: 20240827
  Receipt Date: 20240903
  Transmission Date: 20241017
  Serious: No
  Sender: JOHNSON AND JOHNSON
  Company Number: US-JNJFOC-20240851791

PATIENT
  Age: 66 Year
  Sex: Female
  Weight: 38.3 kg

DRUGS (3)
  1. SIMPONI ARIA [Suspect]
     Active Substance: GOLIMUMAB
     Indication: Rheumatoid arthritis
     Route: 041
  2. SIMPONI ARIA [Suspect]
     Active Substance: GOLIMUMAB
     Route: 041
     Dates: start: 20240820
  3. SIMPONI ARIA [Suspect]
     Active Substance: GOLIMUMAB
     Route: 041

REACTIONS (1)
  - Neutrophil count decreased [Recovering/Resolving]

NARRATIVE: CASE EVENT DATE: 20240820
